FAERS Safety Report 24908570 (Version 2)
Quarter: 2025Q1

REPORT INFORMATION
  Report Type: Spontaneous
  Country: US (occurrence: US)
  Receive Date: 20250131
  Receipt Date: 20250207
  Transmission Date: 20250409
  Serious: Yes (Hospitalization, Other)
  Sender: GRAVITI PHARMACEUTICALS PRIVATE LIMITED
  Company Number: US-GRAVITIPHARMA-GRA-2501-US-LIT-0042

PATIENT
  Age: 23 Year
  Sex: Female

DRUGS (1)
  1. BUPROPION HYDROCHLORIDE [Suspect]
     Active Substance: BUPROPION HYDROCHLORIDE
     Indication: Product used for unknown indication
     Route: 065

REACTIONS (10)
  - Cardiogenic shock [Not Recovered/Not Resolved]
  - Hallucination [Unknown]
  - Tachycardia [Recovering/Resolving]
  - Electrocardiogram QRS complex prolonged [Recovering/Resolving]
  - Status epilepticus [Unknown]
  - Bundle branch block left [Recovering/Resolving]
  - Cardiomyopathy [Recovering/Resolving]
  - Dilated cardiomyopathy [Recovering/Resolving]
  - Ventricular hypokinesia [Recovering/Resolving]
  - Intentional overdose [Unknown]
